FAERS Safety Report 16780750 (Version 3)
Quarter: 2019Q3

REPORT INFORMATION
  Report Type: Report from Study
  Country: DE (occurrence: DE)
  Receive Date: 20190906
  Receipt Date: 20190911
  Transmission Date: 20191005
  Serious: Yes (Life-Threatening, Hospitalization, Other)
  Sender: FDA-Public Use
  Company Number: DE-AMGEN-DEUCT2019142560

PATIENT
  Age: 66 Year
  Sex: Male
  Weight: 80 kg

DRUGS (15)
  1. CARFILZOMIB [Suspect]
     Active Substance: CARFILZOMIB
     Indication: PLASMA CELL MYELOMA
     Dosage: 20 MILLIGRAM/SQ. METER, PER CHEMO REGIM
     Route: 041
     Dates: start: 20190830
  2. SEROFLO [Concomitant]
     Active Substance: FLUTICASONE PROPIONATE\SALMETEROL XINAFOATE
     Indication: CHRONIC OBSTRUCTIVE PULMONARY DISEASE
     Dosage: 25 MILLIGRAM, BID
     Route: 049
     Dates: start: 20160101
  3. DEXAMETHASONE. [Suspect]
     Active Substance: DEXAMETHASONE
     Indication: PLASMA CELL MYELOMA
     Dosage: 8 MILLIGRAM, PER CHEMO REGIM
     Route: 040
     Dates: start: 20190830
  4. DEXAMETHASONE. [Suspect]
     Active Substance: DEXAMETHASONE
     Dosage: 28 MILLIGRAM, PER CHEMO REGIM
     Route: 048
     Dates: start: 20190830
  5. PREGABALIN. [Concomitant]
     Active Substance: PREGABALIN
     Indication: NEURALGIA
     Dosage: 50 MILLIGRAM, QID
     Route: 048
     Dates: start: 20160101
  6. CARFILZOMIB [Suspect]
     Active Substance: CARFILZOMIB
     Dosage: 36 MILLIGRAM/SQ. METER, PER CHEMO REGIM
     Route: 041
  7. OXICODONA [OXYCODONE] [Concomitant]
     Active Substance: OXYCODONE
     Indication: PAIN
     Dosage: 5 MILLIGRAM, BID
     Route: 048
     Dates: start: 20180101
  8. BRIMONIDINE [Concomitant]
     Active Substance: BRIMONIDINE TARTRATE
     Indication: GLAUCOMA
     Dosage: 2 MILLIGRAM, QD
     Route: 047
     Dates: start: 20160101
  9. MESALAZIN [Concomitant]
     Active Substance: MESALAMINE
     Indication: ANTIINFLAMMATORY THERAPY
     Dosage: 1000 MILLIGRAM, TID
     Route: 048
     Dates: start: 20160101
  10. ELOTUZUMAB. [Suspect]
     Active Substance: ELOTUZUMAB
     Indication: PLASMA CELL MYELOMA
     Dosage: 5 MILLIGRAM/KILOGRAM, PER CHEMO REGIM
     Route: 041
     Dates: start: 20190830
  11. LENALIDOMIDE [Suspect]
     Active Substance: LENALIDOMIDE
     Indication: PLASMA CELL MYELOMA
     Dosage: 25 MILLIGRAM, PER CHEMO REGIM
     Route: 048
     Dates: start: 20190830
  12. HEPARIN [Concomitant]
     Active Substance: HEPARIN SODIUM
     Indication: THROMBOSIS PROPHYLAXIS
     Dosage: 7500 INTERNATIONAL UNIT, BID
     Route: 040
     Dates: start: 20190810
  13. METAMIZOL [Concomitant]
     Active Substance: METAMIZOLE SODIUM
     Indication: PYREXIA
  14. TRAVOPROST. [Concomitant]
     Active Substance: TRAVOPROST
     Indication: INTRAOCULAR PRESSURE INCREASED
     Dosage: 40 MILLIGRAM, QD
     Route: 047
     Dates: start: 20160101
  15. METAMIZOL [Concomitant]
     Active Substance: METAMIZOLE SODIUM
     Indication: PAIN
     Dosage: 500 MILLIGRAM, EIGHT TIMES A DAY
     Route: 048
     Dates: start: 20180101

REACTIONS (4)
  - Pyrexia [Unknown]
  - Hypertension [Not Recovered/Not Resolved]
  - Respiratory failure [Recovering/Resolving]
  - Pulmonary congestion [Recovering/Resolving]

NARRATIVE: CASE EVENT DATE: 20190830
